FAERS Safety Report 9538749 (Version 1)
Quarter: 2013Q3

REPORT INFORMATION
  Report Type: Spontaneous
  Country: MX (occurrence: MX)
  Receive Date: 20130920
  Receipt Date: 20130920
  Transmission Date: 20140515
  Serious: Yes (Disabling, Other)
  Sender: FDA-Public Use
  Company Number: PHHY2013MX104468

PATIENT
  Age: 89 Year
  Sex: Male

DRUGS (5)
  1. EXELON PATCH [Suspect]
     Indication: DEMENTIA ALZHEIMER^S TYPE
     Dosage: ONE PATCH DAILY (4.6MG/5CM2)
     Route: 062
  2. EXELON PATCH [Suspect]
     Dosage: ONE PATCH DAILY (9.5MG/10CM2)
     Route: 062
  3. LARGACTIL [Concomitant]
     Dosage: UNK UKN, UNK
  4. ASPIRINA [Concomitant]
     Dosage: UNK UKN, UNK
  5. COMBIVENT [Concomitant]
     Dosage: UNK UKN, UNK

REACTIONS (5)
  - Clavicle fracture [Recovered/Resolved]
  - Hypokinesia [Not Recovered/Not Resolved]
  - Aphasia [Not Recovered/Not Resolved]
  - Disease progression [Not Recovered/Not Resolved]
  - Fall [Recovered/Resolved]
